FAERS Safety Report 7609710-6 (Version None)
Quarter: 2011Q3

REPORT INFORMATION
  Report Type: 
  Country: None (occurrence: None)
  Receive Date: 20110714
  Receipt Date: 20110708
  Transmission Date: 20111222
  Serious: Yes (Other)
  Sender: FDA-Public Use
  Company Number: US-CEPHALON-2011003606

PATIENT
  Sex: Male

DRUGS (1)
  1. ACTIQ [Suspect]
     Indication: BACK PAIN
     Route: 002

REACTIONS (3)
  - BRAIN NEOPLASM [None]
  - CONVULSION [None]
  - HEADACHE [None]
